FAERS Safety Report 8071149-X (Version None)
Quarter: 2012Q1

REPORT INFORMATION
  Report Type: 
  Country: None (occurrence: None)
  Receive Date: 20120125
  Receipt Date: 20120116
  Transmission Date: 20120608
  Serious: Yes (Other)
  Sender: FDA-Public Use
  Company Number: PHHY2012RU003859

PATIENT
  Sex: Female

DRUGS (2)
  1. LUCENTIS [Suspect]
     Indication: RETINAL VASCULAR THROMBOSIS
  2. EXELON [Suspect]
     Route: 062

REACTIONS (4)
  - FALL [None]
  - INSOMNIA [None]
  - MENTAL IMPAIRMENT [None]
  - DRUG INEFFECTIVE [None]
